FAERS Safety Report 7744685-0 (Version None)
Quarter: 2011Q3

REPORT INFORMATION
  Report Type: 
  Country: None (occurrence: None)
  Receive Date: 20110912
  Receipt Date: 20110906
  Transmission Date: 20111222
  Serious: Yes (Other)
  Sender: FDA-Public Use
  Company Number: PHEH2011US03446

PATIENT
  Sex: Female

DRUGS (2)
  1. METFFORMIN HYDROCHLORIDE [Concomitant]
     Dosage: UNK UKN, UNK
  2. EXFORGE [Suspect]
     Dosage: UNK UKN, UNK

REACTIONS (4)
  - FALL [None]
  - LIGAMENT INJURY [None]
  - OEDEMA PERIPHERAL [None]
  - HAND FRACTURE [None]
